FAERS Safety Report 6747247-7 (Version None)
Quarter: 2010Q2

REPORT INFORMATION
  Report Type: 
  Country: None (occurrence: None)
  Receive Date: 20100528
  Receipt Date: 20100521
  Transmission Date: 20101027
  Serious: Yes (Other)
  Sender: FDA-Public Use
  Company Number: A0784718A

PATIENT
  Age: 42 Year
  Sex: Male

DRUGS (5)
  1. AVANDIA [Suspect]
     Indication: DIABETES MELLITUS
     Dosage: 4MG TWICE PER DAY
     Route: 048
     Dates: start: 20050201, end: 20070801
  2. AVANDARYL [Suspect]
     Indication: DIABETES MELLITUS
     Route: 048
  3. OXYCONTIN [Concomitant]
  4. FLEXERIL [Concomitant]
  5. AMARYL [Concomitant]
     Dosage: 4MG IN THE MORNING

REACTIONS (2)
  - CHEST PAIN [None]
  - MYOCARDIAL INFARCTION [None]
